FAERS Safety Report 5908923-9 (Version None)
Quarter: 2008Q4

REPORT INFORMATION
  Report Type: 
  Country: None (occurrence: None)
  Receive Date: 20081006
  Receipt Date: 20080930
  Transmission Date: 20090506
  Serious: Yes (Hospitalization)
  Sender: FDA-Public Use
  Company Number: US-ELI_LILLY_AND_COMPANY-US200810000067

PATIENT
  Sex: Female

DRUGS (4)
  1. HUMALOG [Suspect]
     Route: 058
     Dates: start: 19960101
  2. HUMALOG [Suspect]
     Route: 058
     Dates: start: 19960101
  3. HUMALOG [Suspect]
     Dosage: 10 U, UNK
     Dates: start: 20080929, end: 20080929
  4. HUMULIN R [Suspect]
     Route: 058
     Dates: start: 20070101

REACTIONS (4)
  - BLOOD GLUCOSE INCREASED [None]
  - DRUG DISPENSING ERROR [None]
  - DRUG INEFFECTIVE [None]
  - WRONG DRUG ADMINISTERED [None]
